FAERS Safety Report 14955005 (Version 1)
Quarter: 2018Q2

REPORT INFORMATION
  Report Type: Spontaneous
  Country: FR (occurrence: FR)
  Receive Date: 20180531
  Receipt Date: 20180531
  Transmission Date: 20180711
  Serious: Yes (Other)
  Sender: FDA-Public Use
  Company Number: FR-MERCK KGAA-2048727

PATIENT
  Sex: Female

DRUGS (1)
  1. NOVOTHYROX [Suspect]
     Active Substance: LEVOTHYROXINE SODIUM
     Indication: PRODUCT USED FOR UNKNOWN INDICATION

REACTIONS (19)
  - Arthralgia [None]
  - Aggression [None]
  - Suicidal ideation [None]
  - Malaise [None]
  - Alopecia [None]
  - Sleep disorder [None]
  - Feeling abnormal [None]
  - Mood swings [None]
  - Myalgia [None]
  - Diarrhoea [None]
  - Fatigue [None]
  - Amnesia [None]
  - Affective disorder [None]
  - Insomnia [None]
  - Tendon discomfort [None]
  - Negative thoughts [None]
  - Decreased interest [None]
  - Loss of personal independence in daily activities [None]
  - Somnolence [None]
